FAERS Safety Report 6026671-4 (Version None)
Quarter: 2008Q4

REPORT INFORMATION
  Report Type: 
  Country: None (occurrence: None)
  Receive Date: 20081231
  Receipt Date: 20081217
  Transmission Date: 20090506
  Serious: Yes (Other)
  Sender: FDA-Public Use
  Company Number: 8040622

PATIENT
  Sex: Male

DRUGS (4)
  1. KEPPRA [Suspect]
     Indication: CONVULSION
     Dosage: 500 MG 3/D TRP
     Route: 064
     Dates: start: 20080122, end: 20080801
  2. KEPPRA [Suspect]
     Indication: CONVULSION
     Dosage: 2000 MG TRP
     Route: 064
     Dates: start: 20080801, end: 20081002
  3. PRENATAL VITAMINS /01549301/ [Concomitant]
  4. FOLIC ACID [Concomitant]

REACTIONS (2)
  - MATERNAL DRUGS AFFECTING FOETUS [None]
  - PREMATURE BABY [None]
